FAERS Safety Report 4401034-3 (Version None)
Quarter: 2004Q3

REPORT INFORMATION
  Report Type: 
  Country: None (occurrence: None)
  Receive Date: 20040907
  Receipt Date: 20031001
  Transmission Date: 20050211
  Serious: Yes (Hospitalization)
  Sender: FDA-Public Use
  Company Number: US-BRISTOL-MYERS SQUIBB COMPANY-12398467

PATIENT
  Age: 60 Year
  Sex: Female
  Weight: 131 kg

DRUGS (7)
  1. COUMADIN [Suspect]
     Indication: THROMBOSIS PROPHYLAXIS
     Route: 048
  2. VERAPAMIL [Concomitant]
  3. SINGULAIR [Concomitant]
  4. PRAVACHOL [Concomitant]
  5. LEXAPRO [Concomitant]
  6. BEXTRA [Concomitant]
  7. AMBIEN [Concomitant]
     Indication: SLEEP DISORDER

REACTIONS (3)
  - HEADACHE [None]
  - INTERNATIONAL NORMALISED RATIO ABNORMAL [None]
  - PAIN IN EXTREMITY [None]
